FAERS Safety Report 5579198-8 (Version None)
Quarter: 2008Q1

REPORT INFORMATION
  Report Type: 
  Country: None (occurrence: None)
  Receive Date: 20080102
  Receipt Date: 20071227
  Transmission Date: 20080703
  Serious: Yes (Death)
  Sender: FDA-Public Use
  Company Number: B0499367A

PATIENT
  Age: 60 Year
  Sex: Male

DRUGS (14)
  1. VALTREX [Suspect]
     Indication: VARICELLA
     Dosage: 1000MG THREE TIMES PER DAY
     Route: 048
     Dates: start: 20071124, end: 20071125
  2. LODOPIN [Concomitant]
     Indication: SCHIZOPHRENIA
     Dosage: 150MG PER DAY
     Route: 048
     Dates: start: 19980110, end: 20071125
  3. IMPROMEN [Concomitant]
     Indication: DRUG USE FOR UNKNOWN INDICATION
     Dosage: 6MG PER DAY
     Route: 048
     Dates: start: 20030811, end: 20071125
  4. TEGRETOL [Concomitant]
     Indication: SCHIZOPHRENIA
     Dosage: 300MG PER DAY
     Route: 048
     Dates: start: 19980128, end: 20071125
  5. VEGETAMIN A [Concomitant]
     Indication: SCHIZOPHRENIA
     Route: 048
     Dates: start: 19980901, end: 20071125
  6. UNKNOWN DRUG [Concomitant]
     Dosage: 3MG PER DAY
     Route: 048
     Dates: start: 19971001, end: 20071125
  7. ROHYPNOL [Concomitant]
     Indication: SCHIZOPHRENIA
     Dosage: 2MG PER DAY
     Route: 048
     Dates: start: 19980201, end: 20071125
  8. RISPERDAL [Concomitant]
     Indication: SCHIZOPHRENIA
     Dosage: 2MG PER DAY
     Route: 048
     Dates: start: 20071107, end: 20071125
  9. NITRAZEPAM [Concomitant]
     Indication: SCHIZOPHRENIA
     Dosage: 5MG PER DAY
     Route: 048
     Dates: start: 20000101, end: 20071125
  10. LEVOTOMIN [Concomitant]
     Indication: SCHIZOPHRENIA
     Dosage: 100MG PER DAY
     Route: 048
     Dates: start: 19730612, end: 20071125
  11. SENNOSIDE [Concomitant]
     Indication: SCHIZOPHRENIA
     Route: 048
     Dates: start: 19970901, end: 20071125
  12. GASTER [Concomitant]
     Indication: SCHIZOPHRENIA
     Dosage: 40MG PER DAY
     Route: 048
     Dates: start: 20050803, end: 20071125
  13. POLARAMINE [Concomitant]
     Route: 065
     Dates: start: 20071123
  14. DIAZEPAM [Concomitant]
     Dosage: 10MG PER DAY
     Route: 065
     Dates: start: 20031209, end: 20071125

REACTIONS (4)
  - CARDIAC FAILURE ACUTE [None]
  - DYSPNOEA [None]
  - PNEUMONIA [None]
  - PYREXIA [None]
